FAERS Safety Report 9248768 (Version 2)
Quarter: 2013Q2

REPORT INFORMATION
  Report Type: Spontaneous
  Country: US (occurrence: US)
  Receive Date: 20130423
  Receipt Date: 20130603
  Transmission Date: 20140414
  Serious: No
  Sender: FDA-Public Use
  Company Number: US-TEVA-399999USA

PATIENT
  Sex: Male

DRUGS (6)
  1. PROAIR HFA [Suspect]
     Route: 055
  2. LUMIGAN [Concomitant]
     Indication: GLAUCOMA
  3. METOPROLOL [Concomitant]
     Indication: HYPERTENSION
  4. ADVAIR [Concomitant]
     Indication: CHRONIC OBSTRUCTIVE PULMONARY DISEASE
  5. ADVAIR [Concomitant]
     Indication: ASTHMA
  6. OMEPRAZOLE [Concomitant]
     Indication: GASTROOESOPHAGEAL REFLUX DISEASE

REACTIONS (2)
  - Drug effect decreased [Unknown]
  - Dyspnoea [Unknown]
